FAERS Safety Report 21339129 (Version 7)
Quarter: 2022Q4

REPORT INFORMATION
  Report Type: Report from Study
  Country: US (occurrence: US)
  Receive Date: 20220915
  Receipt Date: 20221214
  Transmission Date: 20230113
  Serious: Yes (Hospitalization, Other)
  Sender: FDA-Public Use
  Company Number: US-TAKEDA-2022TUS064488

PATIENT
  Sex: Male

DRUGS (1)
  1. MARIBAVIR [Suspect]
     Active Substance: MARIBAVIR
     Indication: Cytomegalovirus infection
     Dosage: 400 MILLIGRAM, BID
     Route: 048
     Dates: start: 20220911, end: 20220927

REACTIONS (15)
  - Paralysis [Unknown]
  - Neoplasm malignant [Unknown]
  - Feeding disorder [Recovered/Resolved]
  - Nausea [Unknown]
  - Retching [Unknown]
  - Vomiting [Unknown]
  - Dysgeusia [Unknown]
  - Mineral deficiency [Unknown]
  - Weight decreased [Unknown]
  - Impaired quality of life [Unknown]
  - Ageusia [Recovered/Resolved]
  - Diarrhoea [Unknown]
  - Drug ineffective [Unknown]
  - Fatigue [Unknown]
  - Anosmia [Unknown]
